FAERS Safety Report 13288058 (Version 1)
Quarter: 2017Q1

REPORT INFORMATION
  Report Type: Other
  Country: RS (occurrence: RS)
  Receive Date: 20170302
  Receipt Date: 20170302
  Transmission Date: 20170428
  Serious: Yes (Death, Hospitalization, Other)
  Sender: FDA-Public Use
  Company Number: RS-LUPIN PHARMACEUTICALS INC.-2017-00853

PATIENT
  Age: 26 Year
  Sex: Female

DRUGS (6)
  1. HALOPERIDOL. [Suspect]
     Active Substance: HALOPERIDOL
     Indication: REACTIVE PSYCHOSIS
     Route: 065
  2. CLOZAPINE. [Suspect]
     Active Substance: CLOZAPINE
     Indication: REACTIVE PSYCHOSIS
     Route: 065
  3. RISPERIDONE. [Concomitant]
     Active Substance: RISPERIDONE
     Indication: REACTIVE PSYCHOSIS
     Route: 065
  4. DIAZEPAM. [Suspect]
     Active Substance: DIAZEPAM
     Indication: REACTIVE PSYCHOSIS
     Route: 065
  5. LAMOTRIGINE. [Suspect]
     Active Substance: LAMOTRIGINE
     Indication: REACTIVE PSYCHOSIS
     Route: 065
  6. LORAZEPAM. [Concomitant]
     Active Substance: LORAZEPAM
     Indication: REACTIVE PSYCHOSIS
     Route: 065

REACTIONS (2)
  - Pulmonary embolism [Fatal]
  - Blood cholesterol increased [Unknown]
